FAERS Safety Report 14047537 (Version 2)
Quarter: 2017Q4

REPORT INFORMATION
  Report Type: Spontaneous
  Country: US (occurrence: US)
  Receive Date: 20171005
  Receipt Date: 20171102
  Transmission Date: 20180321
  Serious: Yes (Hospitalization, Other)
  Sender: FDA-Public Use
  Company Number: US-009507513-1709USA013005

PATIENT
  Age: 25 Year
  Sex: Female
  Weight: 91.16 kg

DRUGS (2)
  1. NUVARING [Suspect]
     Active Substance: ETHINYL ESTRADIOL\ETONOGESTREL
     Indication: MENORRHAGIA
     Dosage: 0.12MG/0.015MG, QD
     Route: 067
     Dates: start: 201708, end: 201709
  2. NEXPLANON [Concomitant]
     Active Substance: ETONOGESTREL
     Indication: CONTRACEPTION
     Dosage: UNK, ONCE
     Route: 059
     Dates: start: 201603, end: 201706

REACTIONS (4)
  - Menstruation irregular [Unknown]
  - Joint injury [Unknown]
  - Pulmonary embolism [Not Recovered/Not Resolved]
  - Fall [Unknown]

NARRATIVE: CASE EVENT DATE: 201709
